FAERS Safety Report 17745314 (Version 1)
Quarter: 2020Q2

REPORT INFORMATION
  Report Type: Spontaneous
  Country: US (occurrence: US)
  Receive Date: 20200505
  Receipt Date: 20200505
  Transmission Date: 20200714
  Serious: Yes (Death)
  Sender: FDA-Public Use
  Company Number: None

PATIENT
  Age: 72 Year
  Sex: Female

DRUGS (7)
  1. FAMOTIDINE. [Concomitant]
     Active Substance: FAMOTIDINE
  2. SERTRALINE [Concomitant]
     Active Substance: SERTRALINE HYDROCHLORIDE
  3. FLUCONAZOLE. [Concomitant]
     Active Substance: FLUCONAZOLE
  4. ELIQUIS [Concomitant]
     Active Substance: APIXABAN
  5. HYDROCO/APAP [Concomitant]
     Active Substance: ACETAMINOPHEN\HYDROCODONE
  6. DEXAMETHASONE. [Concomitant]
     Active Substance: DEXAMETHASONE
  7. CAPECITABINE. [Suspect]
     Active Substance: CAPECITABINE
     Indication: BREAST CANCER FEMALE
     Dosage: ?          OTHER FREQUENCY:BIDX7D QOW;?
     Route: 048
     Dates: start: 20200114, end: 20200501

REACTIONS (1)
  - Death [None]

NARRATIVE: CASE EVENT DATE: 20200501
